FAERS Safety Report 4871978-7 (Version None)
Quarter: 2006Q1

REPORT INFORMATION
  Report Type: 
  Country: None (occurrence: None)
  Receive Date: 20060104
  Receipt Date: 20051223
  Transmission Date: 20060701
  Serious: Yes (Other)
  Sender: FDA-Public Use
  Company Number: US-ROCHE-430116

PATIENT
  Age: 47 Year
  Sex: Male

DRUGS (2)
  1. PEGASYS [Suspect]
     Indication: DRUG USE FOR UNKNOWN INDICATION
     Dosage: ROUTE OF ADMINISTRATION REPORTED AS INJECTION.
     Route: 050
     Dates: start: 20051021
  2. RIBASPHERE [Concomitant]
     Indication: DRUG USE FOR UNKNOWN INDICATION
     Route: 065
     Dates: start: 20051021

REACTIONS (2)
  - BACK PAIN [None]
  - SYNCOPE [None]
